FAERS Safety Report 23087646 (Version 1)
Quarter: 2023Q4

REPORT INFORMATION
  Report Type: Spontaneous
  Country: US (occurrence: US)
  Receive Date: 20231020
  Receipt Date: 20231020
  Transmission Date: 20240110
  Serious: Yes (Hospitalization, Other)
  Sender: FDA-Public Use
  Company Number: US-QILU PHARMACEUTICAL (HAINAN) CO.  LTD.-QLH-000169-2023

PATIENT
  Age: 60 Year
  Sex: Female

DRUGS (18)
  1. DAPTOMYCIN [Suspect]
     Active Substance: DAPTOMYCIN
     Indication: Osteomyelitis
     Dosage: DAILY LOW DOSE OF 6 MG/KG (400 MG)
     Route: 042
  2. DAPTOMYCIN [Suspect]
     Active Substance: DAPTOMYCIN
     Indication: Osteomyelitis
  3. DAPTOMYCIN [Suspect]
     Active Substance: DAPTOMYCIN
     Indication: Osteomyelitis
  4. MEROPENEM [Concomitant]
     Active Substance: MEROPENEM
     Dosage: 1 G EVERY 8 HOURS
     Route: 065
  5. MEROPENEM [Concomitant]
     Active Substance: MEROPENEM
  6. ACETAMINOPHEN [Concomitant]
     Active Substance: ACETAMINOPHEN
     Indication: Product used for unknown indication
     Dosage: 2 TABLETS PO EVERY 4 HOURS PRN
     Route: 048
  7. ALBUTEROL [Concomitant]
     Active Substance: ALBUTEROL
     Indication: Product used for unknown indication
     Dosage: 1 TO 2 PUFFS EVERY 4 HOURS PRN
     Route: 065
  8. AMLODIPINE [Concomitant]
     Active Substance: AMLODIPINE BESYLATE
     Indication: Product used for unknown indication
     Dosage: ONCE DAILY PO
     Route: 048
  9. ASPIRIN [Concomitant]
     Active Substance: ASPIRIN
     Indication: Product used for unknown indication
     Dosage: 81 MG ONCE DAILY PO, PATIENT WAS TAKING A DIFFERENT DOSE THAN PRESCRIBED 325 MG
     Route: 048
  10. ASPIRIN [Concomitant]
     Active Substance: ASPIRIN
     Dosage: 81 MG ONCE DAILY PO, PATIENT WAS TAKING A DIFFERENT DOSE THAN PRESCRIBED 325 MG
     Route: 048
  11. CHLORHEXIDINE GLUCONATE [Concomitant]
     Active Substance: CHLORHEXIDINE GLUCONATE
     Indication: Product used for unknown indication
     Dosage: 15 MG ONCE AT BEDTIME
     Route: 048
  12. COLLAGENASE [Concomitant]
     Active Substance: COLLAGENASE CLOSTRIDIUM HISTOLYTICUM
     Indication: Product used for unknown indication
     Dosage: 250 UNITS/GRAM TO BE APPLIED TOPICALLY DAILY
     Route: 061
  13. FERROUS SULFATE [Concomitant]
     Active Substance: FERROUS SULFATE
     Indication: Product used for unknown indication
     Dosage: 325 MG ONCE DAILY PO
     Route: 048
  14. INSULIN DETEMIR [Concomitant]
     Active Substance: INSULIN DETEMIR
     Indication: Product used for unknown indication
     Dosage: 100 UNIT/ML INJECTION AT A DOSE OF 10 UNITS AT BEDTIME
     Route: 058
  15. MEROPENEM [Concomitant]
     Active Substance: MEROPENEM
     Indication: Product used for unknown indication
     Dosage: 1 G EVERY 8 HOURS FOR 14 DAYS
     Route: 042
  16. ONDANSETRON [Concomitant]
     Active Substance: ONDANSETRON
     Indication: Product used for unknown indication
     Dosage: 4 MG EVERY 8 HOURS PRN
     Route: 065
  17. OXYCODONE [Concomitant]
     Active Substance: OXYCODONE
     Indication: Product used for unknown indication
     Dosage: 30 MG ONCE DAILY PO
     Route: 048
  18. OXYCODONE [Concomitant]
     Active Substance: OXYCODONE
     Indication: Product used for unknown indication
     Dosage: 1 TABLET PO EVERY 4 HOURS PRN
     Route: 048

REACTIONS (2)
  - Hyperkalaemia [Recovered/Resolved]
  - Off label use [Recovered/Resolved]
